FAERS Safety Report 7027995-4 (Version None)
Quarter: 2010Q4

REPORT INFORMATION
  Report Type: 
  Country: None (occurrence: None)
  Receive Date: 20101005
  Receipt Date: 20100922
  Transmission Date: 20110411
  Serious: Yes (Hospitalization)
  Sender: FDA-Public Use
  Company Number: JP-EISAI INC.-E2090-01300-SPO-JP

PATIENT
  Sex: Male

DRUGS (19)
  1. EXCEGRAN [Suspect]
     Indication: EPILEPSY
     Route: 048
     Dates: start: 20100724, end: 20100826
  2. VANCOMYCIN HYCHLORIDE [Concomitant]
     Route: 048
     Dates: start: 20100806, end: 20100819
  3. LAC-B [Concomitant]
     Route: 048
     Dates: start: 20100730
  4. PHENOBARBITAL TAB [Concomitant]
     Route: 030
     Dates: start: 20100723, end: 20100723
  5. PHENOBARBITAL TAB [Concomitant]
     Route: 030
     Dates: start: 20100724, end: 20100726
  6. NEOPHAGEN [Concomitant]
     Dosage: 40 ML
     Dates: start: 20100723, end: 20100723
  7. VASOLAN [Concomitant]
     Dates: start: 20100723, end: 20100723
  8. KLARICID [Concomitant]
     Indication: PNEUMONIA ASPIRATION
     Route: 048
     Dates: start: 20100724, end: 20100803
  9. MUCOSIL-10 [Concomitant]
     Indication: PNEUMONIA ASPIRATION
     Route: 048
     Dates: start: 20100724, end: 20100803
  10. MUCODYNE [Concomitant]
     Indication: PNEUMONIA ASPIRATION
     Route: 048
     Dates: start: 20100724, end: 20100803
  11. RADICUT [Concomitant]
     Dates: start: 20100724, end: 20100730
  12. CERCINE [Concomitant]
     Route: 030
     Dates: start: 20100724, end: 20100724
  13. SEFIROM [Concomitant]
     Dates: start: 20100730, end: 20100804
  14. FLURBIPROFEN [Concomitant]
     Dates: start: 20100801, end: 20100801
  15. PICILLIBACTA [Concomitant]
     Dates: start: 20100805, end: 20100806
  16. FAMOTIDINE [Concomitant]
     Dates: start: 20100810, end: 20100827
  17. SEFMAZON [Concomitant]
     Dates: start: 20100811, end: 20100811
  18. PRIDOL [Concomitant]
     Dates: start: 20100813, end: 20100815
  19. LASOPRAN OD [Concomitant]
     Indication: GASTRIC ULCER
     Route: 048
     Dates: start: 20100828, end: 20100901

REACTIONS (2)
  - OEDEMA [None]
  - RASH GENERALISED [None]
